FAERS Safety Report 17127800 (Version 1)
Quarter: 2019Q4

REPORT INFORMATION
  Report Type: Spontaneous
  Country: US (occurrence: US)
  Receive Date: 20191206
  Receipt Date: 20191206
  Transmission Date: 20200122
  Serious: Yes (Life-Threatening, Hospitalization)
  Sender: FDA-Public Use
  Company Number: None

PATIENT
  Age: 54 Year
  Sex: Female
  Weight: 78.75 kg

DRUGS (9)
  1. CYMBALTA 120 MG DAILY [Concomitant]
  2. LYRICA 150 MG BID [Concomitant]
  3. HUMIRA [Suspect]
     Active Substance: ADALIMUMAB
     Indication: PSORIASIS
     Route: 058
     Dates: start: 20160606
  4. ROBAXIN 750 MG TID [Concomitant]
  5. CHANTIX 1 MG BID [Concomitant]
  6. CALTRATE WIT D BID [Concomitant]
  7. FLEXERIL TID PRN [Concomitant]
  8. MVI DAILY [Concomitant]
  9. PERCOCET 10MG TID DOSE REDUCING [Concomitant]

REACTIONS (5)
  - Pain [None]
  - Colitis [None]
  - Abdominal distension [None]
  - Abdominal pain lower [None]
  - Diarrhoea [None]

NARRATIVE: CASE EVENT DATE: 20190828
